FAERS Safety Report 14871468 (Version 1)
Quarter: 2018Q2

REPORT INFORMATION
  Report Type: Spontaneous
  Country: IN (occurrence: IN)
  Receive Date: 20180509
  Receipt Date: 20180509
  Transmission Date: 20180711
  Serious: Yes (Death, Hospitalization)
  Sender: FDA-Public Use
  Company Number: IN-MYLANLABS-2018M1030145

PATIENT
  Age: 2 Year
  Sex: Female

DRUGS (1)
  1. CLADRIBINE. [Suspect]
     Active Substance: CLADRIBINE
     Indication: LANGERHANS^ CELL HISTIOCYTOSIS
     Dosage: SHE RECEIVED A TOTAL OF 6 CYCLES
     Route: 065

REACTIONS (2)
  - Primitive neuroectodermal tumour [Fatal]
  - Gait disturbance [Unknown]
